FAERS Safety Report 14663057 (Version 1)
Quarter: 2018Q1

REPORT INFORMATION
  Report Type: Spontaneous
  Country: GB (occurrence: GB)
  Receive Date: 20180321
  Receipt Date: 20180321
  Transmission Date: 20180509
  Serious: Yes (Other)
  Sender: FDA-Public Use
  Company Number: GB-TORRENT-00016255

PATIENT
  Age: 38 Year
  Sex: Female
  Weight: 107 kg

DRUGS (1)
  1. ARIPIPRAZOLE. [Suspect]
     Active Substance: ARIPIPRAZOLE
     Indication: MENTAL DISORDER
     Route: 048
     Dates: end: 201801

REACTIONS (9)
  - Malaise [Unknown]
  - Monocyte count increased [Recovering/Resolving]
  - Platelet count increased [Recovering/Resolving]
  - Mean cell volume decreased [Recovering/Resolving]
  - Neutrophil count increased [Recovering/Resolving]
  - Fatigue [Unknown]
  - Mean cell haemoglobin decreased [Recovering/Resolving]
  - Red cell distribution width increased [Recovering/Resolving]
  - White blood cell count increased [Recovering/Resolving]

NARRATIVE: CASE EVENT DATE: 201711
